FAERS Safety Report 9335001 (Version 1)
Quarter: 2013Q2

REPORT INFORMATION
  Report Type: Spontaneous
  Country: US (occurrence: US)
  Receive Date: 20130606
  Receipt Date: 20130606
  Transmission Date: 20140414
  Serious: No
  Sender: FDA-Public Use
  Company Number: US-AMGEN-USASP2013029872

PATIENT
  Age: 58 Year
  Sex: Female

DRUGS (6)
  1. PROLIA [Suspect]
     Indication: OSTEOPOROSIS POSTMENOPAUSAL
     Dosage: 60 MG, Q6MO
     Route: 058
     Dates: start: 201204
  2. DIOVAN [Concomitant]
     Dosage: UNK UNK, QD
     Route: 048
     Dates: start: 20130325
  3. ESTRACE [Concomitant]
     Dosage: 0.5 MG, QD
     Route: 048
     Dates: start: 20121009
  4. ASPIRIN [Concomitant]
     Dosage: 81 MG, QD
     Route: 048
     Dates: start: 20100426
  5. CALCIUM [Concomitant]
     Dosage: UNK UNK, BID
     Route: 048
  6. VITAMIN D                          /00107901/ [Concomitant]
     Dosage: UNK UNK, BID
     Route: 048

REACTIONS (4)
  - Hypoaesthesia [Unknown]
  - Bone pain [Unknown]
  - Insomnia [Unknown]
  - Pain in extremity [Unknown]
